FAERS Safety Report 13523805 (Version 3)
Quarter: 2018Q1

REPORT INFORMATION
  Report Type: Spontaneous
  Country: US (occurrence: US)
  Receive Date: 20170508
  Receipt Date: 20180216
  Transmission Date: 20180508
  Serious: No
  Sender: FDA-Public Use
  Company Number: US-VIFOR (INTERNATIONAL) INC.-VIT-2017-03745

PATIENT
  Sex: Male

DRUGS (19)
  1. VELTASSA [Suspect]
     Active Substance: PATIROMER
     Indication: HYPERKALAEMIA
     Dosage: 1 PACKET
     Route: 048
     Dates: start: 20170228
  2. LISINOPRIL. [Concomitant]
     Active Substance: LISINOPRIL
     Dates: start: 20170404
  3. RENA-VITE RX [Concomitant]
     Active Substance: ASCORBIC ACID\BIOTIN\CALCIUM PANTOTHENATE\CYANOCOBALAMIN\FOLIC ACID\NIACINAMIDE\PYRIDOXINE HYDROCHLORIDE\RIBOFLAVIN\THIAMINE MONONITRATE
     Dates: start: 20170308
  4. CARVEDILOL. [Concomitant]
     Active Substance: CARVEDILOL
  5. ATORVASTATIN [Concomitant]
     Active Substance: ATORVASTATIN
     Dates: start: 20171225
  6. AMLODIPINE [Concomitant]
     Active Substance: AMLODIPINE BESYLATE
     Dates: start: 20170824
  7. NATEGLINIDE. [Concomitant]
     Active Substance: NATEGLINIDE
     Dates: start: 20171227
  8. RANITIDINE. [Concomitant]
     Active Substance: RANITIDINE
  9. ULORIC [Concomitant]
     Active Substance: FEBUXOSTAT
     Dates: start: 20171003
  10. COREG CR [Concomitant]
     Active Substance: CARVEDILOL PHOSPHATE
     Dates: start: 20171127
  11. ATORVASTATIN [Concomitant]
     Active Substance: ATORVASTATIN
     Dates: start: 20180103
  12. VENTOLIN [Concomitant]
     Active Substance: ALBUTEROL SULFATE
  13. HYDRALAZINE [Concomitant]
     Active Substance: HYDRALAZINE HYDROCHLORIDE
     Dates: start: 20170824
  14. VASCEPA [Concomitant]
     Active Substance: ICOSAPENT ETHYL
     Dates: start: 20170526
  15. VELTASSA [Suspect]
     Active Substance: PATIROMER
     Dates: start: 20170221
  16. COREG CR [Concomitant]
     Active Substance: CARVEDILOL PHOSPHATE
     Dates: start: 20170825
  17. ATORVASTATIN [Concomitant]
     Active Substance: ATORVASTATIN
     Dates: start: 20171002
  18. CLOPIDOGREL [Concomitant]
     Active Substance: CLOPIDOGREL BISULFATE
     Dates: start: 20170610
  19. ULORIC [Concomitant]
     Active Substance: FEBUXOSTAT
     Dates: start: 20171003

REACTIONS (2)
  - Constipation [Not Recovered/Not Resolved]
  - Treatment noncompliance [Unknown]

NARRATIVE: CASE EVENT DATE: 2017
